FAERS Safety Report 21682510 (Version 1)
Quarter: 2022Q4

REPORT INFORMATION
  Report Type: Spontaneous
  Country: BE (occurrence: BE)
  Receive Date: 20221205
  Receipt Date: 20221205
  Transmission Date: 20230113
  Serious: Yes (Other)
  Sender: FDA-Public Use
  Company Number: None

PATIENT
  Age: 23 Year
  Sex: Female
  Weight: 80 kg

DRUGS (1)
  1. DOSTINEX [Suspect]
     Active Substance: CABERGOLINE
     Indication: Lactation inhibition therapy
     Dosage: 0.25 MG, 2X/DAY (EVERY 12 HOURS)
     Route: 048
     Dates: start: 20220329, end: 20220331

REACTIONS (7)
  - Sense of oppression [Not Recovered/Not Resolved]
  - Vertigo [Not Recovered/Not Resolved]
  - Vomiting [Not Recovered/Not Resolved]
  - Syncope [Not Recovered/Not Resolved]
  - Fatigue [Not Recovered/Not Resolved]
  - Nausea [Not Recovered/Not Resolved]
  - Anxiety [Unknown]

NARRATIVE: CASE EVENT DATE: 20220330
